FAERS Safety Report 8579185-1 (Version None)
Quarter: 2012Q2

REPORT INFORMATION
  Report Type: 
  Country: None (occurrence: None)
  Receive Date: 20120423
  Receipt Date: 20100623
  Transmission Date: 20120825
  Serious: Yes (Death)
  Sender: FDA-Public Use
  Company Number: PHHY2010US41168

PATIENT
  Age: 30 Year
  Sex: Female
  Weight: 39.6 kg

DRUGS (1)
  1. EXJADE [Suspect]
     Indication: MYELOID LEUKAEMIA
     Dosage: 750 MG, QD, ORAL
     Route: 048
     Dates: start: 20070101

REACTIONS (1)
  - ACUTE MYELOID LEUKAEMIA [None]
